FAERS Safety Report 5066727-6 (Version None)
Quarter: 2006Q3

REPORT INFORMATION
  Report Type: 
  Country: None (occurrence: None)
  Receive Date: 20060710
  Receipt Date: 20060322
  Transmission Date: 20061208
  Serious: Yes (Other)
  Sender: FDA-Public Use
  Company Number: PHEH2006US03913

PATIENT
  Age: 67 Year
  Sex: Male

DRUGS (3)
  1. GLEEVEC [Suspect]
     Indication: CHRONIC MYELOID LEUKAEMIA
     Dosage: 400 MG QD
     Dates: start: 20040301, end: 20060307
  2. LUNESTA [Concomitant]
  3. CREON AMYLASE, LIPASE, PANCREATIN, PROTEASE) [Concomitant]

REACTIONS (10)
  - ASTHENIA [None]
  - BONE MARROW FAILURE [None]
  - DYSPNOEA [None]
  - FATIGUE [None]
  - FIBROSIS [None]
  - HAEMATOCRIT DECREASED [None]
  - HAEMOGLOBIN DECREASED [None]
  - LEUKOCYTOSIS [None]
  - PALLOR [None]
  - PLATELET COUNT DECREASED [None]
